FAERS Safety Report 9215419 (Version 1)
Quarter: 2013Q2

REPORT INFORMATION
  Report Type: Report from Study
  Country: CZ (occurrence: CZ)
  Receive Date: 20130405
  Receipt Date: 20130405
  Transmission Date: 20140414
  Serious: Yes (Hospitalization, Other)
  Sender: FDA-Public Use
  Company Number: CZ-AMGEN-UK386154

PATIENT
  Age: 77 Year
  Sex: Male
  Weight: 100 kg

DRUGS (9)
  1. DENOSUMAB [Suspect]
     Indication: PROSTATE CANCER
     Dosage: UNK BLINDED, UNK
     Route: 058
     Dates: start: 20071030, end: 20090707
  2. UNSPECIFIED ANTIDIABETIC AGENT [Concomitant]
     Dosage: UNK UNK, UNK
     Route: 048
  3. GLICLAZIDE [Concomitant]
     Dosage: UNK UNK, TID
     Route: 048
  4. AMINOPHYLLINE [Concomitant]
     Dosage: UNK UNK, BID
     Route: 048
  5. VASOCARDIN [Concomitant]
     Dosage: UNK UNK, BID
     Route: 048
  6. FLUVASTATIN SODIUM [Concomitant]
     Dosage: UNK UNK, QD
     Route: 048
  7. BICALUTAMIDE [Concomitant]
     Dosage: UNK UNK, QD
     Route: 048
  8. ACETYLSALICYLIC ACID [Concomitant]
     Dosage: 100 MG, QD
     Route: 048
  9. FLUTAMIDE [Concomitant]
     Dosage: 250 MG, TID
     Route: 048
     Dates: start: 20071002

REACTIONS (2)
  - Gingival abscess [Not Recovered/Not Resolved]
  - Osteomyelitis [Not Recovered/Not Resolved]
